FAERS Safety Report 16129685 (Version 1)
Quarter: 2019Q1

REPORT INFORMATION
  Report Type: Spontaneous
  Country: CN (occurrence: CN)
  Receive Date: 20190328
  Receipt Date: 20190328
  Transmission Date: 20190418
  Serious: Yes (Hospitalization)
  Sender: FDA-Public Use
  Company Number: CN-PFIZER INC-2019128777

PATIENT
  Age: 36 Year
  Sex: Female
  Weight: 52 kg

DRUGS (3)
  1. EPIRUBICIN HCL [Suspect]
     Active Substance: EPIRUBICIN HYDROCHLORIDE
     Indication: CHEMOTHERAPY
     Dosage: 150 MG, SINGLE
     Route: 041
     Dates: start: 20181226, end: 20181226
  2. SODIUM CHLORIDE. [Concomitant]
     Active Substance: SODIUM CHLORIDE
     Indication: VEHICLE SOLUTION USE
     Dosage: 100 ML, SINGLE
     Route: 041
     Dates: start: 20181226, end: 20181226
  3. CYCLOPHOSPHAMIDE. [Suspect]
     Active Substance: CYCLOPHOSPHAMIDE
     Indication: CHEMOTHERAPY
     Dosage: 0.9 G, SINGLE
     Route: 041
     Dates: start: 20181226, end: 20181226

REACTIONS (4)
  - Nausea [Recovering/Resolving]
  - Full blood count decreased [Recovering/Resolving]
  - Asthenia [Recovering/Resolving]
  - Myalgia [Recovering/Resolving]

NARRATIVE: CASE EVENT DATE: 20190103
